FAERS Safety Report 6015931-9 (Version None)
Quarter: 2008Q4

REPORT INFORMATION
  Report Type: 
  Country: None (occurrence: None)
  Receive Date: 20081222
  Receipt Date: 20081212
  Transmission Date: 20090506
  Serious: Yes (Other)
  Sender: FDA-Public Use
  Company Number: NL-AMGEN-US320010

PATIENT
  Age: 72 Year
  Sex: Female

DRUGS (3)
  1. ENBREL [Suspect]
     Indication: RHEUMATOID ARTHRITIS
     Route: 058
     Dates: start: 20070322, end: 20081017
  2. AZATHIOPRINE [Suspect]
     Indication: RHEUMATOID ARTHRITIS
     Dates: start: 20070801
  3. FOSAVANCE [Concomitant]
     Indication: OSTEOPOROSIS
     Dosage: 70/2800 ONCE A WEEK
     Dates: start: 20070401

REACTIONS (1)
  - MYELOFIBROSIS [None]
